FAERS Safety Report 13911431 (Version 1)
Quarter: 2017Q3

REPORT INFORMATION
  Report Type: Spontaneous
  Country: US (occurrence: US)
  Receive Date: 20170828
  Receipt Date: 20170828
  Transmission Date: 20171127
  Serious: No
  Sender: FDA-Public Use
  Company Number: US-GLAXOSMITHKLINE-US2017131756

PATIENT
  Age: 62 Year
  Sex: Female

DRUGS (10)
  1. PRILOSEC [Concomitant]
     Active Substance: OMEPRAZOLE MAGNESIUM
  2. BENICAR [Concomitant]
     Active Substance: OLMESARTAN MEDOXOMIL
  3. FISH OIL [Concomitant]
     Active Substance: FISH OIL
  4. TANZEUM [Suspect]
     Active Substance: ALBIGLUTIDE
     Indication: TYPE 2 DIABETES MELLITUS
     Dosage: 50 MG, WE
     Route: 042
  5. ALEVE [Concomitant]
     Active Substance: NAPROXEN SODIUM
  6. AZO CRANBERRY [Concomitant]
     Active Substance: DIETARY SUPPLEMENT
  7. DICLOFENAC [Concomitant]
     Active Substance: DICLOFENAC
  8. ATORVASTATIN [Concomitant]
     Active Substance: ATORVASTATIN
  9. POTASSIUM CHLORIDE. [Concomitant]
     Active Substance: POTASSIUM CHLORIDE
  10. HYDROCHLOROTHIAZIDE. [Concomitant]
     Active Substance: HYDROCHLOROTHIAZIDE

REACTIONS (6)
  - Glycosylated haemoglobin increased [Unknown]
  - Product preparation error [Unknown]
  - Drug ineffective [Unknown]
  - Urinary tract infection [Unknown]
  - Blood glucose increased [Unknown]
  - Contusion [Unknown]

NARRATIVE: CASE EVENT DATE: 2017
